FAERS Safety Report 16762034 (Version 2)
Quarter: 2019Q4

REPORT INFORMATION
  Report Type: Spontaneous
  Country: JP (occurrence: JP)
  Receive Date: 20190830
  Receipt Date: 20191030
  Transmission Date: 20200122
  Serious: Yes (Hospitalization, Other)
  Sender: FDA-Public Use
  Company Number: JP-SUNOVION-2019SUN003494

PATIENT
  Age: 26 Year
  Sex: Male

DRUGS (8)
  1. LUNESTA [Suspect]
     Active Substance: ESZOPICLONE
     Indication: INSOMNIA
     Dosage: 1 MG, QD
     Route: 048
     Dates: start: 20181010, end: 20190816
  2. FYCOMPA [Suspect]
     Active Substance: PERAMPANEL
     Indication: EPILEPSY
     Dosage: 2 MG, QD
     Route: 048
     Dates: start: 20180725, end: 20190816
  3. SELENICA-R [Suspect]
     Active Substance: VALPROATE SODIUM
     Indication: EPILEPSY
     Dosage: 800 MG, QD
     Route: 048
     Dates: start: 20110621, end: 20190816
  4. SELENICA-R [Suspect]
     Active Substance: VALPROATE SODIUM
     Dosage: 4000 MG, SINGLE
     Route: 048
     Dates: start: 20190817, end: 20190817
  5. SELENICA-R [Suspect]
     Active Substance: VALPROATE SODIUM
     Dosage: 800 MG, QD
     Route: 048
     Dates: start: 20190822, end: 20190825
  6. SELENICA-R [Suspect]
     Active Substance: VALPROATE SODIUM
     Dosage: 1000 MG, QD
     Route: 048
     Dates: start: 20190826
  7. LUNESTA [Suspect]
     Active Substance: ESZOPICLONE
     Dosage: 20 MG, SINGLE
     Route: 048
     Dates: start: 20190817, end: 20190817
  8. FYCOMPA [Suspect]
     Active Substance: PERAMPANEL
     Dosage: 56 MG, SINGLE
     Dates: start: 20190817, end: 20190817

REACTIONS (4)
  - Altered state of consciousness [Recovered/Resolved]
  - Irritability [Recovered/Resolved]
  - Intentional overdose [Unknown]
  - Suicide attempt [Recovered/Resolved]

NARRATIVE: CASE EVENT DATE: 20190817
